FAERS Safety Report 17135098 (Version 2)
Quarter: 2020Q1

REPORT INFORMATION
  Report Type: Spontaneous
  Country: GB (occurrence: GB)
  Receive Date: 20191210
  Receipt Date: 20200316
  Transmission Date: 20200409
  Serious: Yes (Death, Other)
  Sender: FDA-Public Use
  Company Number: GB-PFIZER INC-2019529874

PATIENT
  Age: 77 Year
  Sex: Male

DRUGS (4)
  1. DOXYCYCLINE MONOHYDRATE [Suspect]
     Active Substance: DOXYCYCLINE
     Indication: PNEUMONIA
     Dosage: UNK
  2. MEROPENEM. [Suspect]
     Active Substance: MEROPENEM
     Dosage: UNK
  3. APIXABAN [Concomitant]
     Active Substance: APIXABAN
     Dosage: 2.5 MG TWICE DAILY (BD) AND SWITCHED BACK TO 5 MG BD
  4. BENZYLPENICILLIN [Suspect]
     Active Substance: PENICILLIN G
     Indication: PNEUMONIA
     Dosage: UNK

REACTIONS (21)
  - Dyspnoea [Not Recovered/Not Resolved]
  - Asthenia [Unknown]
  - Musculoskeletal pain [Unknown]
  - Blood lactic acid increased [Unknown]
  - Pulmonary fibrosis [Fatal]
  - Therapy non-responder [Unknown]
  - Lung disorder [Unknown]
  - Cough [Unknown]
  - Syncope [Not Recovered/Not Resolved]
  - Malaise [Unknown]
  - Liver function test abnormal [Not Recovered/Not Resolved]
  - Sepsis [Unknown]
  - Dizziness [Unknown]
  - Radiation pneumonitis [Unknown]
  - Lower respiratory tract infection [Unknown]
  - Hypophagia [Not Recovered/Not Resolved]
  - Pallor [Not Recovered/Not Resolved]
  - Nasopharyngitis [Not Recovered/Not Resolved]
  - Decreased appetite [Unknown]
  - Radiation fibrosis - lung [Unknown]
  - Metabolic acidosis [Unknown]

NARRATIVE: CASE EVENT DATE: 201707
